FAERS Safety Report 10674659 (Version 1)
Quarter: 2014Q4

REPORT INFORMATION
  Report Type: Spontaneous
  Country: US (occurrence: US)
  Receive Date: 20141224
  Receipt Date: 20141224
  Transmission Date: 20150529
  Serious: Yes (Hospitalization)
  Sender: FDA-Public Use
  Company Number: US-PFIZER INC-2014348658

PATIENT
  Age: 71 Year
  Sex: Male

DRUGS (1)
  1. GABAPENTIN. [Suspect]
     Active Substance: GABAPENTIN
     Dosage: 300 MG, 2X/DAY

REACTIONS (6)
  - Withdrawal syndrome [Unknown]
  - Drug ineffective [Unknown]
  - Syncope [Unknown]
  - Gait disturbance [Unknown]
  - Fall [Unknown]
  - Activities of daily living impaired [Unknown]
